FAERS Safety Report 8003764-3 (Version None)
Quarter: 2011Q4

REPORT INFORMATION
  Report Type: 
  Country: None (occurrence: None)
  Receive Date: 20111222
  Receipt Date: 20111214
  Transmission Date: 20120403
  Serious: Yes (Hospitalization, Other)
  Sender: FDA-Public Use
  Company Number: BR-US-EMD SERONO, INC.-7090143

PATIENT
  Sex: Female

DRUGS (1)
  1. REBIF [Suspect]
     Indication: PRODUCT USED FOR UNKNOWN INDICATION
     Dates: start: 20100601

REACTIONS (7)
  - URINARY TRACT INFECTION [None]
  - LUNG INFECTION [None]
  - FEELING COLD [None]
  - JOINT STIFFNESS [None]
  - INJECTION SITE ERYTHEMA [None]
  - LIP DISCOLOURATION [None]
  - MYALGIA [None]
